FAERS Safety Report 11989505 (Version 7)
Quarter: 2020Q2

REPORT INFORMATION
  Report Type: Report from Study
  Country: IT (occurrence: IT)
  Receive Date: 20160202
  Receipt Date: 20200627
  Transmission Date: 20200713
  Serious: Yes (Other)
  Sender: FDA-Public Use
  Company Number: PHHY2015IT027346

PATIENT
  Age: 50 Year
  Sex: Female

DRUGS (1)
  1. GILENYA [Suspect]
     Active Substance: FINGOLIMOD HYDROCHLORIDE
     Indication: MULTIPLE SCLEROSIS
     Dosage: 1 POSOLOGIC UNIT, QD
     Route: 048
     Dates: start: 20140304

REACTIONS (12)
  - Aspartate aminotransferase increased [Not Recovered/Not Resolved]
  - Vertigo [Recovered/Resolved]
  - Fatigue [Recovering/Resolving]
  - Lymphocyte count increased [Recovering/Resolving]
  - Liver function test abnormal [Unknown]
  - White blood cell count decreased [Recovering/Resolving]
  - Transaminases increased [Unknown]
  - Anxiety [Not Recovered/Not Resolved]
  - Alanine aminotransferase increased [Not Recovered/Not Resolved]
  - Dermatitis [Recovered/Resolved]
  - Lymphocyte count decreased [Recovering/Resolving]
  - Dizziness [Recovered/Resolved]

NARRATIVE: CASE EVENT DATE: 20140523
